FAERS Safety Report 9651011 (Version 2)
Quarter: 2014Q2

REPORT INFORMATION
  Report Type: Report from Study
  Country: SK (occurrence: SK)
  Receive Date: 20131029
  Receipt Date: 20140626
  Transmission Date: 20141212
  Serious: Yes (Hospitalization)
  Sender: FDA-Public Use
  Company Number: PHHY2013SK120485

PATIENT
  Age: 42 Year
  Sex: Female
  Weight: 54 kg

DRUGS (4)
  1. GILENYA [Suspect]
     Indication: MULTIPLE SCLEROSIS
     Dosage: 0.5 MG, QD
     Route: 048
     Dates: start: 20121213, end: 20130204
  2. GILENYA [Interacting]
     Dosage: 0.5 MG, DAILY
     Route: 048
     Dates: start: 20130724
  3. TIMONIL [Interacting]
     Indication: EPILEPSY
     Dosage: 300 MG, BID
     Dates: start: 20130111
  4. KEPPRA [Concomitant]
     Indication: EPILEPSY
     Dosage: 240 MG, BID
     Dates: start: 20130724

REACTIONS (4)
  - Liver disorder [Recovered/Resolved]
  - Gamma-glutamyltransferase increased [Recovered/Resolved]
  - Alanine aminotransferase increased [Recovered/Resolved]
  - Drug interaction [Unknown]
